FAERS Safety Report 5493901-7 (Version None)
Quarter: 2007Q4

REPORT INFORMATION
  Report Type: 
  Country: None (occurrence: None)
  Receive Date: 20071023
  Receipt Date: 20071012
  Transmission Date: 20080405
  Serious: Yes (Other)
  Sender: FDA-Public Use
  Company Number: US-PFIZER INC-2007086193

PATIENT
  Sex: Male
  Weight: 81 kg

DRUGS (3)
  1. LIPITOR [Suspect]
     Indication: BLOOD CHOLESTEROL INCREASED
     Route: 048
  2. ANALGESICS [Suspect]
     Indication: MUSCLE INJURY
  3. TIMOLOL MALEATE [Concomitant]

REACTIONS (4)
  - DIZZINESS [None]
  - HYPERTENSION [None]
  - INSOMNIA [None]
  - MUSCLE INJURY [None]
